FAERS Safety Report 8887826 (Version 7)
Quarter: 2013Q2

REPORT INFORMATION
  Report Type: Spontaneous
  Country: US (occurrence: US)
  Receive Date: 20121106
  Receipt Date: 20130520
  Transmission Date: 20140414
  Serious: Yes (Hospitalization, Other)
  Sender: FDA-Public Use
  Company Number: US-009507513-1211USA001656

PATIENT
  Sex: Female
  Weight: 61.22 kg

DRUGS (4)
  1. FOSAMAX [Suspect]
     Indication: OSTEOPOROSIS PROPHYLAXIS
     Dosage: 10 MG, QD
     Route: 048
     Dates: start: 199911, end: 200807
  2. FOSAMAX [Suspect]
     Indication: OSTEOPOROSIS
     Dosage: 70 MG, QW
     Route: 048
     Dates: start: 199911, end: 200807
  3. FOSAMAX PLUS D [Suspect]
     Dosage: 70 MG/2800 IU, QW
     Route: 048
     Dates: start: 20080707, end: 201002
  4. ALENDRONATE SODIUM [Suspect]
     Dosage: 70 MG, UNK

REACTIONS (37)
  - Femur fracture [Unknown]
  - Intramedullary rod insertion [Unknown]
  - Fall [Unknown]
  - Anaemia postoperative [Unknown]
  - Transfusion [Unknown]
  - Coronary artery bypass [Unknown]
  - Spinal fusion surgery [Unknown]
  - Spinal fusion surgery [Unknown]
  - Spondylolisthesis [Unknown]
  - Spinal decompression [Unknown]
  - Spinal decompression [Unknown]
  - Spinal laminectomy [Unknown]
  - Chest pain [Unknown]
  - Low turnover osteopathy [Unknown]
  - Vertebroplasty [Unknown]
  - Spondylolisthesis [Unknown]
  - Ulna fracture [Recovered/Resolved]
  - Fall [Unknown]
  - Radius fracture [Recovered/Resolved]
  - Arthritis [Unknown]
  - Hypertension [Unknown]
  - Hyperlipidaemia [Unknown]
  - Cardiovascular disorder [Unknown]
  - Compression fracture [Unknown]
  - Anaemia postoperative [Unknown]
  - Fall [Unknown]
  - Compression fracture [Unknown]
  - Body height decreased [Unknown]
  - Compression fracture [Unknown]
  - Vertebroplasty [Unknown]
  - Intervertebral disc degeneration [Unknown]
  - Spinal osteoarthritis [Unknown]
  - Spondylolisthesis [Unknown]
  - Nephrolithiasis [Unknown]
  - Arteriosclerosis [Unknown]
  - Musculoskeletal discomfort [Unknown]
  - Gastrooesophageal reflux disease [Unknown]
